FAERS Safety Report 9777585 (Version 3)
Quarter: 2014Q1

REPORT INFORMATION
  Report Type: Report from Study
  Country: US (occurrence: US)
  Receive Date: 20131222
  Receipt Date: 20140307
  Transmission Date: 20141002
  Serious: Yes (Life-Threatening, Hospitalization)
  Sender: FDA-Public Use
  Company Number: US-009507513-1312USA009266

PATIENT
  Age: 47 Year
  Sex: Female
  Weight: 62 kg

DRUGS (22)
  1. VORINOSTAT [Suspect]
     Indication: ACUTE MYELOID LEUKAEMIA
     Dosage: 500MG (3X/DAY) PO ON DAYS 1-3 (DAILY DOSE: 1500MG)
     Route: 048
     Dates: start: 20131213, end: 20131215
  2. VORINOSTAT [Suspect]
     Dosage: 500MG (3X/DAY) PO ON DAYS 1-3 (DAILY DOSE: 1500MG)
     Route: 048
     Dates: start: 20131024, end: 20131026
  3. IDARUBICIN [Suspect]
     Indication: ACUTE MYELOID LEUKAEMIA
     Dosage: 8MG/M2/DAY IV OVER 15 MIN ON DAYS 4-6
     Route: 042
     Dates: start: 20131216, end: 20131216
  4. IDARUBICIN [Suspect]
     Dosage: 12MG/M2/DAY IV OVER 15 MIN ON DAYS 4-6
     Route: 042
     Dates: start: 20131027, end: 20131029
  5. CYTARABINE [Suspect]
     Indication: ACUTE MYELOID LEUKAEMIA
     Dosage: 750MG/M2/DAY CONTINUOUS IV INFUSION ON DAYS 4-6
     Route: 042
     Dates: start: 20131216, end: 20131216
  6. CYTARABINE [Suspect]
     Dosage: 1500MG/M2/DAY CONTINUOUS IV INFUSION ON DAYS 4-7
     Route: 042
     Dates: start: 20131027, end: 20131030
  7. APREPITANT [Suspect]
  8. ONDANSETRON [Suspect]
  9. MAALOX (CALCIUM CARBONATE) [Concomitant]
     Dosage: UNK
  10. CALCIUM (UNSPECIFIED) [Concomitant]
     Dosage: UNK
  11. DEXAMETHASONE [Concomitant]
     Dosage: UNK
  12. DOCUSATE SODIUM [Concomitant]
     Dosage: UNK
  13. LORAZEPAM [Concomitant]
     Dosage: UNK
  14. NICOTINE [Concomitant]
     Dosage: UNK
  15. PANTOPRAZOLE [Concomitant]
     Dosage: UNK
  16. PAROXETINE [Concomitant]
     Dosage: UNK
  17. POLYETHYLENE GLYCOL [Concomitant]
     Dosage: UNK
  18. SODIUM BICARBONATE [Concomitant]
     Dosage: UNK
  19. SODIUM CHLORIDE [Concomitant]
     Dosage: UNK
  20. OXYCODONE [Concomitant]
     Dosage: UNK
  21. PREDNISOLONE ACETATE [Concomitant]
     Dosage: UNK
  22. GRANISETRON [Concomitant]
     Dosage: UNK

REACTIONS (1)
  - Electrocardiogram QT prolonged [Recovered/Resolved]
